FAERS Safety Report 20622343 (Version 1)
Quarter: 2022Q1

REPORT INFORMATION
  Report Type: Spontaneous
  Country: US (occurrence: US)
  Receive Date: 20220322
  Receipt Date: 20220322
  Transmission Date: 20220423
  Serious: No
  Sender: FDA-Public Use
  Company Number: US-ALLERGAN-2136434US

PATIENT
  Age: 66 Year
  Sex: Female

DRUGS (2)
  1. LATISSE [Suspect]
     Active Substance: BIMATOPROST
     Indication: Growth of eyelashes
     Dosage: UNK
     Dates: start: 20211025
  2. VITAMINS NOS [Concomitant]
     Active Substance: VITAMINS

REACTIONS (2)
  - Rash [Unknown]
  - Erythema [Recovering/Resolving]

NARRATIVE: CASE EVENT DATE: 20211026
